FAERS Safety Report 7874030-1 (Version None)
Quarter: 2011Q4

REPORT INFORMATION
  Report Type: 
  Country: None (occurrence: None)
  Receive Date: 20111017
  Receipt Date: 20101122
  Transmission Date: 20120403
  Serious: Yes (Hospitalization)
  Sender: FDA-Public Use
  Company Number: 2010S1000380

PATIENT
  Age: 73 Year
  Sex: Male

DRUGS (1)
  1. DARVON [Suspect]
     Indication: BACK PAIN
     Dosage: ORAL
     Route: 048
     Dates: end: 19850101

REACTIONS (1)
  - MYOCARDIAL INFARCTION [None]
